FAERS Safety Report 7618452-2 (Version None)
Quarter: 2011Q3

REPORT INFORMATION
  Report Type: 
  Country: None (occurrence: None)
  Receive Date: 20110718
  Receipt Date: 20110707
  Transmission Date: 20111222
  Serious: Yes (Hospitalization)
  Sender: FDA-Public Use
  Company Number: FR-MERCK-1107USA01553

PATIENT
  Age: 59 Year
  Sex: Female

DRUGS (7)
  1. SPIRONOLACTONE [Suspect]
     Route: 048
     Dates: end: 20110429
  2. AMLODIPINE BESYLATE [Concomitant]
     Indication: HYPERTENSION
     Route: 048
  3. COZAAR [Suspect]
     Indication: HYPERTENSION
     Route: 048
     Dates: end: 20110429
  4. CLONAZEPAM [Concomitant]
     Route: 048
     Dates: end: 20110430
  5. HYPERIUM [Concomitant]
     Indication: HYPERTENSION
     Route: 048
  6. RABEPRAZOLE SODIUM [Concomitant]
     Indication: GASTRODUODENAL ULCER
     Route: 048
  7. ACUPAN [Concomitant]
     Route: 030
     Dates: start: 20110408, end: 20110425

REACTIONS (3)
  - RENAL FAILURE ACUTE [None]
  - DRUG INTERACTION [None]
  - HYPERKALAEMIA [None]
